FAERS Safety Report 16173109 (Version 1)
Quarter: 2019Q2

REPORT INFORMATION
  Report Type: Spontaneous
  Country: ZA (occurrence: ZA)
  Receive Date: 20190409
  Receipt Date: 20190409
  Transmission Date: 20190711
  Serious: Yes (Other)
  Sender: FDA-Public Use
  Company Number: ZA-009507513-1811ZAF012597

PATIENT
  Age: 31 Year
  Sex: Male

DRUGS (19)
  1. EMTRICITABINE [Concomitant]
     Active Substance: EMTRICITABINE
     Indication: RETROVIRAL INFECTION
     Dosage: UNK
  2. NEVIRAPINE. [Concomitant]
     Active Substance: NEVIRAPINE
     Indication: RETROVIRAL INFECTION
     Dosage: UNK
  3. ALUVIA [Concomitant]
     Active Substance: LOPINAVIR\RITONAVIR
  4. CLOFAZIMINE [Suspect]
     Active Substance: CLOFAZIMINE
     Indication: TUBERCULOSIS
     Dosage: 100 MILLIGRAM, QD
     Route: 048
     Dates: start: 20180516
  5. PYRIDOXINE [Concomitant]
     Active Substance: PYRIDOXINE
     Dosage: UNK
  6. LAMIVUDINE. [Concomitant]
     Active Substance: LAMIVUDINE
  7. BEDAQUILINE [Suspect]
     Active Substance: BEDAQUILINE
     Indication: TUBERCULOSIS
     Dosage: 200 MILLIGRAM, TIW
     Route: 048
     Dates: start: 20180719
  8. LEVOFLOXACIN. [Suspect]
     Active Substance: LEVOFLOXACIN
     Indication: TUBERCULOSIS
     Dosage: 750 MILLIGRAM, QD
     Route: 048
     Dates: start: 20180516
  9. IMIPENEM AND CILASTATIN [Suspect]
     Active Substance: CILASTATIN SODIUM\IMIPENEM
     Dosage: 750 MILLIGRAM, BID
     Route: 048
     Dates: start: 20181026, end: 20181104
  10. DELAMANID [Suspect]
     Active Substance: DELAMANID
     Indication: TUBERCULOSIS
     Dosage: 100 MILLIGRAM, BID
     Route: 048
     Dates: start: 20181026
  11. IMIPENEM AND CILASTATIN [Suspect]
     Active Substance: CILASTATIN SODIUM\IMIPENEM
     Indication: TUBERCULOSIS
     Dosage: 750 MILLIGRAM, BID
     Route: 042
     Dates: start: 20181025, end: 20190308
  12. PYRAZINAMIDE. [Suspect]
     Active Substance: PYRAZINAMIDE
     Indication: TUBERCULOSIS
     Dosage: 1.5 GRAM, QD
     Route: 048
     Dates: start: 20180516
  13. TERIZIDONE [Suspect]
     Active Substance: TERIZIDONE
     Indication: TUBERCULOSIS
     Dosage: 500 MILLIGRAM, QD (NOCTE)
     Route: 048
     Dates: start: 20180516
  14. TENOFOVIR DISOPROXIL FUMARATE. [Concomitant]
     Active Substance: TENOFOVIR DISOPROXIL FUMARATE
     Indication: RETROVIRAL INFECTION
     Dosage: UNK
  15. AUGMENTIN [Concomitant]
     Active Substance: AMOXICILLIN\CLAVULANATE POTASSIUM
  16. AMINOSALICYLIC ACID [Suspect]
     Active Substance: AMINOSALICYLIC ACID
     Indication: TUBERCULOSIS
     Dosage: 8 GRAM, QD
     Route: 048
     Dates: start: 20181026, end: 20181103
  17. AUGMENTIN [Suspect]
     Active Substance: AMOXICILLIN\CLAVULANATE POTASSIUM
     Indication: TUBERCULOSIS
     Dosage: 1 GRAM, BID
     Route: 042
     Dates: start: 20181026, end: 20181104
  18. ELTROXIN [Concomitant]
     Active Substance: LEVOTHYROXINE
     Dosage: UNK
  19. ZIDOVUDINE. [Concomitant]
     Active Substance: ZIDOVUDINE

REACTIONS (3)
  - Ototoxicity [Unknown]
  - Deafness [Not Recovered/Not Resolved]
  - Vomiting [Not Recovered/Not Resolved]

NARRATIVE: CASE EVENT DATE: 20181103
